FAERS Safety Report 23303233 (Version 1)
Quarter: 2023Q4

REPORT INFORMATION
  Report Type: Report from Study
  Country: CO (occurrence: None)
  Receive Date: 20231215
  Receipt Date: 20231215
  Transmission Date: 20240109
  Serious: Yes (Death, Other)
  Sender: FDA-Public Use
  Company Number: 2023A283380

PATIENT
  Age: 31450 Day
  Sex: Male
  Weight: 74 kg

DRUGS (1)
  1. SYMBICORT [Suspect]
     Active Substance: BUDESONIDE\FORMOTEROL FUMARATE DIHYDRATE
     Indication: Asthma
     Route: 055
     Dates: start: 20230310, end: 20231113

REACTIONS (1)
  - Death [Fatal]

NARRATIVE: CASE EVENT DATE: 20231113
